FAERS Safety Report 10913647 (Version 1)
Quarter: 2015Q1

REPORT INFORMATION
  Report Type: Spontaneous
  Country: None (occurrence: None)
  Receive Date: 20150311
  Receipt Date: 20150311
  Transmission Date: 20150721
  Serious: Yes (Life-Threatening, Other)
  Sender: FDA-Public Use
  Company Number: None

PATIENT
  Age: 44 Year
  Sex: Male
  Weight: 108.86 kg

DRUGS (1)
  1. SUBOXONE [Suspect]
     Active Substance: BUPRENORPHINE HYDROCHLORIDE\NALOXONE HYDROCHLORIDE
     Indication: DRUG THERAPY
     Dosage: 3 FILMS A DAY
     Route: 048
     Dates: start: 20101011, end: 20150310

REACTIONS (5)
  - Pain in jaw [None]
  - Gingival atrophy [None]
  - Alopecia [None]
  - Tooth loss [None]
  - Anxiety [None]

NARRATIVE: CASE EVENT DATE: 20150225
